FAERS Safety Report 22090725 (Version 1)
Quarter: 2023Q1

REPORT INFORMATION
  Report Type: Spontaneous
  Country: US (occurrence: US)
  Receive Date: 20230313
  Receipt Date: 20230313
  Transmission Date: 20230417
  Serious: No
  Sender: FDA-Public Use
  Company Number: US-TOLMAR, INC.-23US039119

PATIENT

DRUGS (2)
  1. KETOCONAZOLE [Suspect]
     Active Substance: KETOCONAZOLE
     Indication: Hair growth abnormal
     Dosage: 2 % PERCENT
     Route: 003
     Dates: start: 2022, end: 2022
  2. KETOCONAZOLE [Suspect]
     Active Substance: KETOCONAZOLE
     Dosage: 2 % PERCENT
     Route: 003

REACTIONS (3)
  - Rash [Recovered/Resolved]
  - Dry skin [Recovered/Resolved]
  - Erythema [Recovered/Resolved]

NARRATIVE: CASE EVENT DATE: 20220101
